FAERS Safety Report 11399218 (Version 1)
Quarter: 2015Q3

REPORT INFORMATION
  Report Type: Spontaneous
  Country: US (occurrence: US)
  Receive Date: 20150820
  Receipt Date: 20150820
  Transmission Date: 20151125
  Serious: No
  Sender: FDA-Public Use
  Company Number: US-ASTRAZENECA-2015SE78500

PATIENT
  Age: 22775 Day
  Sex: Female
  Weight: 99.8 kg

DRUGS (3)
  1. BLOOD PRESSURE MEDICINES [Concomitant]
     Active Substance: UNSPECIFIED INGREDIENT
     Indication: BLOOD PRESSURE MEASUREMENT
  2. BYDUREON [Suspect]
     Active Substance: EXENATIDE
     Indication: TYPE 2 DIABETES MELLITUS
     Route: 058
  3. CHOLESTEROL MEDICINES [Concomitant]
     Indication: BLOOD CHOLESTEROL

REACTIONS (3)
  - Injection site bruising [Unknown]
  - Product quality issue [Unknown]
  - Injection site mass [Unknown]

NARRATIVE: CASE EVENT DATE: 20150807
